FAERS Safety Report 5612649-9 (Version None)
Quarter: 2008Q1

REPORT INFORMATION
  Report Type: 
  Country: None (occurrence: None)
  Receive Date: 20080204
  Receipt Date: 20080124
  Transmission Date: 20080703
  Serious: Yes (Other)
  Sender: FDA-Public Use
  Company Number: DE-JNJFOC-20080104467

PATIENT
  Age: 67 Year
  Sex: Female

DRUGS (1)
  1. CAELYX [Suspect]
     Indication: BREAST CANCER
     Route: 042

REACTIONS (3)
  - ARTHRALGIA [None]
  - NIGHTMARE [None]
  - PALMAR-PLANTAR ERYTHRODYSAESTHESIA SYNDROME [None]
